FAERS Safety Report 5799410-X (Version None)
Quarter: 2008Q3

REPORT INFORMATION
  Report Type: 
  Country: None (occurrence: None)
  Receive Date: 20080703
  Receipt Date: 20080626
  Transmission Date: 20090109
  Serious: Yes (Other)
  Sender: FDA-Public Use
  Company Number: BR-PFIZER INC-2008054623

PATIENT
  Sex: Female
  Weight: 80 kg

DRUGS (3)
  1. CELEBRA [Suspect]
     Indication: OSTEOARTHRITIS
     Route: 048
  2. PURAN T4 [Concomitant]
     Route: 065
  3. LOSARTAN [Concomitant]
     Route: 065

REACTIONS (2)
  - NASOPHARYNGITIS [None]
  - THROAT TIGHTNESS [None]
